FAERS Safety Report 16576653 (Version 1)
Quarter: 2019Q3

REPORT INFORMATION
  Report Type: Spontaneous
  Country: DK (occurrence: DK)
  Receive Date: 20190716
  Receipt Date: 20190716
  Transmission Date: 20191004
  Serious: Yes (Life-Threatening, Hospitalization)
  Sender: FDA-Public Use
  Company Number: DK-TEVA-2019-DK-1077181

PATIENT
  Age: 66 Year
  Sex: Female

DRUGS (9)
  1. IBUPROFEN. [Concomitant]
     Active Substance: IBUPROFEN
     Indication: PAIN
     Dosage: DOSE: 1 1/2 TABLET ON DEMAND, MAXIMUM 3 TIMES DAILY?STRENGTH: 400 MG UNIT DOSE: 600 MG
     Route: 048
     Dates: start: 20181010
  2. PARACETAMOL [Concomitant]
     Active Substance: ACETAMINOPHEN
     Indication: PAIN
     Dosage: 3000 MILLIGRAM DAILY; STRENGTH: 500 MG
     Route: 048
     Dates: start: 20180718
  3. DICLOFENAC [Concomitant]
     Active Substance: DICLOFENAC
     Indication: PAIN
     Dosage: DOSE: 1 RECTAL PILL AS NEEDED, NOT MORE THAN 2 TIMES DAILY.
     Route: 054
     Dates: start: 20181024
  4. LOPERAMIDE [Concomitant]
     Active Substance: LOPERAMIDE
     Indication: PRODUCT USED FOR UNKNOWN INDICATION
  5. ATORVASTATIN [Concomitant]
     Active Substance: ATORVASTATIN
     Indication: HYPERCHOLESTEROLAEMIA
     Dosage: STRENGTH: 40 MG
     Route: 048
     Dates: start: 20131121
  6. MORPHINE [Concomitant]
     Active Substance: MORPHINE
     Indication: PAIN
     Dosage: DOSIS: 0.5 TABLETS ON DEMAND 4 DAILY WALK?STRENGTH: 10 MG UNIT DOSE: 5 MG
     Route: 048
     Dates: start: 20190524
  7. POTASSIUM CHLORIDE. [Concomitant]
     Active Substance: POTASSIUM CHLORIDE
     Indication: BLOOD POTASSIUM DECREASED
     Dosage: 750 MILLIGRAM DAILY; STRENGTH: 750 MG
     Route: 048
     Dates: start: 20190611
  8. CARBOPLATIN. [Suspect]
     Active Substance: CARBOPLATIN
     Indication: NON-SMALL CELL LUNG CANCER
     Dosage: STRENGTH: 10 MG/ML
     Route: 042
     Dates: start: 20190604
  9. NAVELBINE [Suspect]
     Active Substance: VINORELBINE TARTRATE
     Indication: NON-SMALL CELL LUNG CANCER
     Dosage: STRENGTH: 80 MG
     Route: 048
     Dates: start: 20190604

REACTIONS (2)
  - Pyrexia [Recovered/Resolved]
  - Pancytopenia [Recovering/Resolving]

NARRATIVE: CASE EVENT DATE: 20190617
